FAERS Safety Report 21396718 (Version 1)
Quarter: 2022Q3

REPORT INFORMATION
  Report Type: Spontaneous
  Country: CH (occurrence: CH)
  Receive Date: 20220930
  Receipt Date: 20220930
  Transmission Date: 20221026
  Serious: Yes (Hospitalization, Other)
  Sender: FDA-Public Use
  Company Number: None

PATIENT
  Age: 29 Year
  Sex: Male
  Weight: 83 kg

DRUGS (2)
  1. CLOZAPINE [Suspect]
     Active Substance: CLOZAPINE
     Indication: Antipsychotic therapy
     Dosage: 250 MILLIGRAM DAILY; CLOZAPINE-MEPHA
     Route: 048
     Dates: start: 20220705, end: 20220802
  2. Temesta [Concomitant]
     Indication: Psychotic disorder
     Dosage: 1 MILLIGRAM DAILY; UNIT DOSE : 1 MG, FREQUENCY TIME : 1 DAY
     Route: 048
     Dates: start: 2022

REACTIONS (2)
  - Myopericarditis [Recovering/Resolving]
  - Liver disorder [Not Recovered/Not Resolved]

NARRATIVE: CASE EVENT DATE: 20220803
